FAERS Safety Report 5848252-5 (Version None)
Quarter: 2008Q3

REPORT INFORMATION
  Report Type: 
  Country: None (occurrence: None)
  Receive Date: 20080818
  Receipt Date: 20080814
  Transmission Date: 20090109
  Serious: Yes (Hospitalization)
  Sender: FDA-Public Use
  Company Number: DE-BRISTOL-MYERS SQUIBB COMPANY-14015663

PATIENT
  Age: 39 Year
  Sex: Female
  Weight: 61 kg

DRUGS (4)
  1. TAXOL [Suspect]
     Indication: BREAST CANCER
     Dosage: APPROXIMATELY 113.4 MG. THERAPY IS ONGOING.
     Route: 042
     Dates: start: 20071019, end: 20071019
  2. CYCLOPHOSPHAMIDE [Suspect]
     Indication: BREAST CANCER
     Dosage: APPROXIMATELY 1008 MG.START DATE-24-AUG-07
     Route: 042
     Dates: start: 20071005, end: 20071005
  3. EPIRUBICIN [Suspect]
     Indication: BREAST CANCER
     Dosage: APPROXIMATELY 189 MG. THERAPY START DATE IS 24-AUG-2007.
     Route: 042
     Dates: start: 20071005, end: 20071005
  4. XELODA [Suspect]
     Indication: BREAST CANCER
     Dosage: THERAPY IS ONGOING. FREQ: Q3W ON DAYS 1-14 EVERY 3 WEEKS
     Route: 048
     Dates: start: 20071019, end: 20071019

REACTIONS (2)
  - GENERAL PHYSICAL HEALTH DETERIORATION [None]
  - PYREXIA [None]
